FAERS Safety Report 8737822 (Version 2)
Quarter: 2012Q4

REPORT INFORMATION
  Report Type: Report from Study
  Country: JP (occurrence: JP)
  Receive Date: 20120822
  Receipt Date: 20120911
  Transmission Date: 20130627
  Serious: Yes (Hospitalization)
  Sender: FDA-Public Use
  Company Number: JP-009507513-1208JPN004269

PATIENT

DRUGS (13)
  1. PEGINTRON [Suspect]
     Indication: HEPATITIS C
     Dosage: 1.5 Microgram per kilogram
     Route: 058
     Dates: start: 20120207, end: 20120508
  2. PEGINTRON [Suspect]
     Dosage: 1.5 Microgram per kilogram
     Route: 058
     Dates: start: 20120523, end: 20120718
  3. REBETOL [Suspect]
     Indication: HEPATITIS C
     Dosage: 600 mg, qd
     Route: 048
     Dates: start: 20120207, end: 20120226
  4. REBETOL [Suspect]
     Dosage: 200 mg, qd
     Route: 048
     Dates: start: 20120227, end: 20120327
  5. REBETOL [Suspect]
     Dosage: 400 mg, qd
     Route: 048
     Dates: start: 20120328, end: 20120508
  6. REBETOL [Suspect]
     Dosage: 400 mg, qd
     Route: 048
     Dates: start: 20120523, end: 20120724
  7. TELAVIC [Suspect]
     Indication: HEPATITIS C
     Dosage: 2250 mg, qd
     Route: 048
     Dates: start: 20120207, end: 20120502
  8. GASTER [Concomitant]
     Indication: PROPHYLAXIS
     Dosage: 40 mg, qd
     Route: 048
     Dates: start: 20120207
  9. CELESTAMINE COMBINATION [Concomitant]
     Indication: PROPHYLAXIS
     Dosage: 2 DF, qd
     Route: 048
     Dates: start: 20120207
  10. CELESTAMINE COMBINATION [Concomitant]
     Dosage: 2 DF, qd
     Route: 048
     Dates: start: 20120501
  11. LOXONIN [Concomitant]
     Indication: PROPHYLAXIS
     Dosage: 1 DF, prn
     Route: 048
     Dates: start: 20120207
  12. LOXONIN [Concomitant]
     Dosage: 1 DF, qd
     Route: 048
     Dates: end: 20120724
  13. ZYLORIC [Concomitant]
     Indication: BLOOD URIC ACID INCREASED
     Dosage: 1 DF, qd
     Route: 048
     Dates: end: 20120508

REACTIONS (3)
  - Pyrexia [Recovered/Resolved]
  - Rash [None]
  - Haemoglobin decreased [None]
